FAERS Safety Report 7522028-5 (Version None)
Quarter: 2011Q2

REPORT INFORMATION
  Report Type: 
  Country: None (occurrence: None)
  Receive Date: 20110523
  Receipt Date: 20110506
  Transmission Date: 20111010
  Serious: Yes (Other)
  Sender: FDA-Public Use
  Company Number: CA-145188

PATIENT
  Sex: Female

DRUGS (12)
  1. WINRHO [Suspect]
     Dosage: (300 ?G), (120 ?G TOTAL), (300 ?G TOTAL), (120 ?G),
     Dates: start: 19960801, end: 19960801
  2. WINRHO [Suspect]
     Dosage: (300 ?G), (120 ?G TOTAL), (300 ?G TOTAL), (120 ?G),
     Dates: start: 19960429, end: 19960429
  3. WINRHO [Suspect]
     Dosage: (300 ?G), (120 ?G TOTAL), (300 ?G TOTAL), (120 ?G),
     Dates: start: 19940610, end: 19940610
  4. WINRHO [Suspect]
     Dosage: (300 ?G), (120 ?G TOTAL), (300 ?G TOTAL), (120 ?G),
     Dates: start: 19930402, end: 19930402
  5. WINRHO [Suspect]
     Dosage: (300 ?G), (120 ?G TOTAL), (300 ?G TOTAL), (120 ?G),
     Dates: start: 19930118, end: 19930118
  6. WINRHO [Suspect]
     Dosage: (300 ?G), (120 ?G TOTAL), (300 ?G TOTAL), (120 ?G),
     Dates: start: 19941112, end: 19941112
  7. WINRHO [Suspect]
  8. WINRHO [Suspect]
  9. WINRHO [Suspect]
  10. WINRHO [Suspect]
  11. WINRHO [Suspect]
  12. WINRHO [Suspect]

REACTIONS (2)
  - PRODUCT QUALITY ISSUE [None]
  - HEPATITIS C VIRUS TEST POSITIVE [None]
